FAERS Safety Report 23623694 (Version 1)
Quarter: 2024Q1

REPORT INFORMATION
  Report Type: Spontaneous
  Country: US (occurrence: None)
  Receive Date: 20240312
  Receipt Date: 20240312
  Transmission Date: 20240409
  Serious: No
  Sender: FDA-Public Use
  Company Number: None

PATIENT
  Age: 47 Year
  Sex: Male

DRUGS (2)
  1. IMATINIB [Suspect]
     Active Substance: IMATINIB
     Indication: Therapy interrupted
     Dosage: FREQUENCY : DAILY;?
     Route: 048
     Dates: start: 20240209, end: 20240222
  2. IMATINIB [Suspect]
     Active Substance: IMATINIB
     Indication: Cytopenia

REACTIONS (3)
  - Cytopenia [None]
  - Adverse drug reaction [None]
  - Therapy interrupted [None]

NARRATIVE: CASE EVENT DATE: 20240222
